FAERS Safety Report 23670736 (Version 1)
Quarter: 2024Q1

REPORT INFORMATION
  Report Type: Spontaneous
  Country: US (occurrence: US)
  Receive Date: 20240326
  Receipt Date: 20240326
  Transmission Date: 20240410
  Serious: No
  Sender: FDA-Public Use
  Company Number: US-BoehringerIngelheim-2024-BI-016052

PATIENT
  Sex: Male

DRUGS (1)
  1. JARDIANCE [Suspect]
     Active Substance: EMPAGLIFLOZIN
     Indication: Product used for unknown indication
     Dates: start: 202402

REACTIONS (6)
  - Coronary arterial stent insertion [Unknown]
  - Limb injury [Unknown]
  - Weight increased [Unknown]
  - Tendon rupture [Unknown]
  - Gait disturbance [Unknown]
  - Patella fracture [Unknown]
